FAERS Safety Report 8479820-2 (Version None)
Quarter: 2012Q2

REPORT INFORMATION
  Report Type: 
  Country: None (occurrence: None)
  Receive Date: 20120629
  Receipt Date: 20120618
  Transmission Date: 20120825
  Serious: Yes (Hospitalization)
  Sender: FDA-Public Use
  Company Number: ZA-ELI_LILLY_AND_COMPANY-ZA201206006073

PATIENT
  Sex: Female

DRUGS (3)
  1. HUMALOG MIX 75/25 [Suspect]
     Indication: DIABETES MELLITUS
     Dosage: 56 U, EACH MORNING
     Route: 058
     Dates: start: 20120611
  2. ORAL ANTIDIABETICS [Concomitant]
     Indication: DIABETES MELLITUS
     Dosage: UNK
  3. HUMALOG MIX 75/25 [Suspect]
     Dosage: 28 U, EACH EVENING
     Route: 058
     Dates: start: 20120611

REACTIONS (2)
  - HYPERGLYCAEMIA [None]
  - PAIN [None]
